FAERS Safety Report 4922240-5 (Version None)
Quarter: 2006Q1

REPORT INFORMATION
  Report Type: 
  Country: None (occurrence: None)
  Receive Date: 20060224
  Receipt Date: 20050428
  Transmission Date: 20060701
  Serious: Yes (Death, Hospitalization)
  Sender: FDA-Public Use
  Company Number: US-MERCK-0505USA00246

PATIENT
  Age: 55 Year
  Sex: Female
  Weight: 83 kg

DRUGS (10)
  1. VIOXX [Suspect]
     Indication: ARTHRITIS
     Route: 048
     Dates: start: 20000101, end: 20000501
  2. DARVOCET-N 50 [Concomitant]
     Route: 065
  3. PREVACID [Concomitant]
     Route: 065
  4. CELEBREX [Concomitant]
     Route: 065
  5. SOMA [Concomitant]
     Route: 065
  6. SKELAXIN [Concomitant]
     Route: 065
  7. TYLENOL W/ CODEINE NO. 3 [Concomitant]
     Route: 065
  8. ROBAXIN [Concomitant]
     Route: 065
  9. THEOPHYLLINE [Concomitant]
     Route: 065
  10. ATIVAN [Concomitant]
     Route: 065

REACTIONS (6)
  - CARDIOMEGALY [None]
  - CHEST PAIN [None]
  - GASTRITIS [None]
  - GASTROOESOPHAGEAL REFLUX DISEASE [None]
  - MUSCLE SPASMS [None]
  - MYOCARDIAL INFARCTION [None]
